FAERS Safety Report 9733731 (Version 1)
Quarter: 2013Q4

REPORT INFORMATION
  Report Type: Spontaneous
  Country: US (occurrence: US)
  Receive Date: 20131205
  Receipt Date: 20131205
  Transmission Date: 20140711
  Serious: Yes (Other)
  Sender: FDA-Public Use
  Company Number: US-BAYER-2013-147167

PATIENT
  Age: 18 Year
  Sex: Female
  Weight: 54 kg

DRUGS (1)
  1. MIDOL PM [Suspect]
     Dosage: 12 DF, ONCE
     Route: 048

REACTIONS (5)
  - Self injurious behaviour [None]
  - Extra dose administered [None]
  - Somnolence [None]
  - Agitation [None]
  - Vomiting [None]
